FAERS Safety Report 11225623 (Version 1)
Quarter: 2015Q2

REPORT INFORMATION
  Report Type: Spontaneous
  Country: DE (occurrence: DE)
  Receive Date: 20150629
  Receipt Date: 20150629
  Transmission Date: 20150821
  Serious: Yes (Other)
  Sender: FDA-Public Use
  Company Number: DE-PFIZER INC-2015209176

PATIENT
  Age: 28 Year
  Sex: Female
  Weight: 90 kg

DRUGS (7)
  1. SULFASALAZINE. [Suspect]
     Active Substance: SULFASALAZINE
     Indication: RHEUMATOID ARTHRITIS
     Dosage: 500 MG, 4X/DAY 0. - 38.1. GESTATIONAL WEEK
     Route: 048
     Dates: start: 20140317, end: 20141209
  2. DECORTIN [Concomitant]
     Active Substance: PREDNISONE
     Dosage: 0. - 38.1. GESTATIONAL WEEK10 MG, DAILY
     Route: 048
  3. DECORTIN [Concomitant]
     Active Substance: PREDNISONE
     Dosage: 15 MG, DAILY 0. - 38.1. GESTATIONAL WEEK
     Route: 048
     Dates: end: 20141209
  4. DECORTIN [Concomitant]
     Active Substance: PREDNISONE
     Indication: RHEUMATOID ARTHRITIS
     Dosage: 7.5 MG, DAILY 0. - 38.1. GESTATIONAL WEEK
     Route: 048
     Dates: start: 20140317
  5. FOLIO FORTE [Concomitant]
     Active Substance: FOLIC ACID\VITAMINS
     Indication: PROPHYLAXIS OF NEURAL TUBE DEFECT
     Dosage: 0.8 MG, DAILY 0. - 38.1. GESTATIONAL WEEK
     Route: 048
  6. QUENSYL [Suspect]
     Active Substance: HYDROXYCHLOROQUINE
     Indication: RHEUMATOID ARTHRITIS
     Dosage: 200 MG, 2X/DAY 0. - 38.1. GESTATIONAL WEEK
     Route: 048
     Dates: start: 20140317, end: 20141209
  7. CIMZIA [Concomitant]
     Active Substance: CERTOLIZUMAB PEGOL
     Indication: RHEUMATOID ARTHRITIS
     Dosage: 200 MG, UNK
     Route: 058
     Dates: start: 20140317, end: 20140325

REACTIONS (1)
  - Campylobacter infection [Unknown]
